FAERS Safety Report 15861559 (Version 1)
Quarter: 2019Q1

REPORT INFORMATION
  Report Type: Spontaneous
  Country: FR (occurrence: FR)
  Receive Date: 20190124
  Receipt Date: 20190124
  Transmission Date: 20190417
  Serious: Yes (Hospitalization)
  Sender: FDA-Public Use
  Company Number: FR-ASTRAZENECA-2019SE08076

PATIENT
  Age: 75 Year
  Sex: Female
  Weight: 70 kg

DRUGS (3)
  1. IBRANCE 125 MG, G???LULE [Concomitant]
     Indication: BREAST CANCER FEMALE
     Route: 048
     Dates: start: 20180702
  2. LEVOTHYROX 75 MICROGRAMMES, COMPRIM??? S???CABLE [Concomitant]
     Indication: HYPOTHYROIDISM
     Dosage: 75UG/INHAL DAILY
     Route: 048
  3. FASLODEX [Suspect]
     Active Substance: FULVESTRANT
     Indication: BREAST CANCER FEMALE
     Route: 030
     Dates: start: 201805

REACTIONS (1)
  - Ischaemic stroke [Recovered/Resolved with Sequelae]

NARRATIVE: CASE EVENT DATE: 201807
